FAERS Safety Report 17650625 (Version 1)
Quarter: 2020Q2

REPORT INFORMATION
  Report Type: Spontaneous
  Country: US (occurrence: US)
  Receive Date: 20200409
  Receipt Date: 20200409
  Transmission Date: 20200713
  Serious: Yes (Other)
  Sender: FDA-Public Use
  Company Number: US-ACCORD-177660

PATIENT
  Age: 58 Year
  Sex: Male

DRUGS (2)
  1. CARBOPLATIN. [Suspect]
     Active Substance: CARBOPLATIN
     Indication: PROSTATE CANCER
     Dosage: SIX CYCLES
     Dates: start: 201801, end: 201804
  2. BICALUTAMIDE. [Concomitant]
     Active Substance: BICALUTAMIDE
     Indication: HORMONE-REFRACTORY PROSTATE CANCER
     Dosage: LAST ADMINISTRATION: SEP-2018
     Dates: start: 201606

REACTIONS (2)
  - Off label use [Unknown]
  - BRCA2 gene mutation [Not Recovered/Not Resolved]

NARRATIVE: CASE EVENT DATE: 2018
